FAERS Safety Report 15890403 (Version 2)
Quarter: 2019Q2

REPORT INFORMATION
  Report Type: Spontaneous
  Country: US (occurrence: US)
  Receive Date: 20190130
  Receipt Date: 20190403
  Transmission Date: 20190711
  Serious: Yes (Other)
  Sender: FDA-Public Use
  Company Number: US-ASTRAZENECA-2018SF15144

PATIENT
  Age: 26907 Day
  Sex: Female

DRUGS (18)
  1. HYDRALAZINE [Concomitant]
     Active Substance: HYDRALAZINE HYDROCHLORIDE
  2. NEXIUM [Suspect]
     Active Substance: ESOMEPRAZOLE MAGNESIUM
     Route: 048
     Dates: start: 20070127, end: 20070327
  3. CLONIDINE. [Concomitant]
     Active Substance: CLONIDINE
  4. GABAPENTIN. [Concomitant]
     Active Substance: GABAPENTIN
  5. NITROLINGUAL [Concomitant]
     Active Substance: NITROGLYCERIN
  6. NEXIUM [Suspect]
     Active Substance: ESOMEPRAZOLE MAGNESIUM
     Route: 048
     Dates: start: 20090318
  7. NASONEX [Concomitant]
     Active Substance: MOMETASONE FUROATE
  8. NEXIUM [Suspect]
     Active Substance: ESOMEPRAZOLE MAGNESIUM
     Route: 048
     Dates: start: 2004, end: 2015
  9. PREVACID [Suspect]
     Active Substance: LANSOPRAZOLE
     Route: 065
  10. CLINDAMYCIN. [Concomitant]
     Active Substance: CLINDAMYCIN
  11. PANTOPRAZOLE [Suspect]
     Active Substance: PANTOPRAZOLE
     Route: 065
     Dates: start: 20160127
  12. DYRENIUM [Concomitant]
     Active Substance: TRIAMTERENE
  13. NEXIUM [Suspect]
     Active Substance: ESOMEPRAZOLE MAGNESIUM
     Route: 048
     Dates: start: 20110428, end: 20151110
  14. TAMOXIFEN [Concomitant]
     Active Substance: TAMOXIFEN
  15. EPIPEN [Concomitant]
     Active Substance: EPINEPHRINE
  16. LEVAQUIN [Concomitant]
     Active Substance: LEVOFLOXACIN
  17. PREVACID [Suspect]
     Active Substance: LANSOPRAZOLE
     Dosage: GEBNERIC (LANSOPRAZOLE)
     Route: 065
     Dates: start: 20110603, end: 20110603
  18. DULOXETINE. [Concomitant]
     Active Substance: DULOXETINE

REACTIONS (1)
  - Chronic kidney disease [Not Recovered/Not Resolved]

NARRATIVE: CASE EVENT DATE: 20110302
